FAERS Safety Report 24052087 (Version 4)
Quarter: 2024Q4

REPORT INFORMATION
  Report Type: Spontaneous
  Country: ES (occurrence: ES)
  Receive Date: 20240704
  Receipt Date: 20241212
  Transmission Date: 20250115
  Serious: Yes (Hospitalization, Other)
  Sender: BAUSCH AND LOMB
  Company Number: ES-BAXTER-2024BAX018311

PATIENT
  Age: 67 Year
  Sex: Female
  Weight: 69.1 kg

DRUGS (54)
  1. LORAZEPAM [Suspect]
     Active Substance: LORAZEPAM
     Indication: Product used for unknown indication
     Dosage: UNK, START DATE: JAN-2023, ONGOING
     Route: 065
     Dates: start: 202301
  2. LORAZEPAM [Suspect]
     Active Substance: LORAZEPAM
     Route: 065
     Dates: start: 202301
  3. ACYCLOVIR [Suspect]
     Active Substance: ACYCLOVIR
     Indication: Product used for unknown indication
     Dosage: UNK, START DATE: 2023, ONGOING
     Route: 065
     Dates: start: 2023
  4. IFOSFAMIDE [Suspect]
     Active Substance: IFOSFAMIDE
     Indication: Diffuse large B-cell lymphoma stage I
     Dosage: UNK
     Route: 042
     Dates: start: 20240206, end: 20240322
  5. IFOSFAMIDE [Suspect]
     Active Substance: IFOSFAMIDE
     Dosage: 5.000 MG/M2, CYCLE 2, FORMULATION: INFUSION, AS A PART OF R-ICE REGIMEN
     Route: 042
     Dates: start: 20240321, end: 20240322
  6. IFOSFAMIDE [Suspect]
     Active Substance: IFOSFAMIDE
     Dosage: 5 MG/M2, CYCLE 3, FORMULATION: INFUSION, AS A PART OF R-ICE REGIMEN
     Route: 042
     Dates: start: 20240424, end: 20240425
  7. IFOSFAMIDE [Suspect]
     Active Substance: IFOSFAMIDE
     Dosage: 5 MG/M2, FORMULATION: INFUSION, AS A PART OF R-ICE REGIMEN
     Route: 065
     Dates: start: 20240425
  8. CARBOPLATIN [Suspect]
     Active Substance: CARBOPLATIN
     Indication: Diffuse large B-cell lymphoma stage I
     Dosage: 2 AUC, CYCLE 3, AS A PART OF R-ICE REGIMEN
     Route: 042
     Dates: start: 20240424
  9. CARBOPLATIN [Suspect]
     Active Substance: CARBOPLATIN
     Dosage: 5 AUC, CYCLE 1, AS A PART OF R-ICE REGIMEN
     Route: 042
     Dates: start: 20240206, end: 20240206
  10. CARBOPLATIN [Suspect]
     Active Substance: CARBOPLATIN
     Dosage: 2 AUC, CYCLE 1, AS A PART OF R-ICE REGIMEN
     Route: 042
     Dates: start: 20240321, end: 20240321
  11. CALCIUM [Suspect]
     Active Substance: CALCIUM
     Indication: Product used for unknown indication
     Route: 065
     Dates: start: 20240226
  12. TRAMADOL [Suspect]
     Active Substance: TRAMADOL
     Indication: Product used for unknown indication
     Route: 065
     Dates: start: 20240226
  13. DOXORUBICIN [Suspect]
     Active Substance: DOXORUBICIN
     Indication: Product used for unknown indication
     Dosage: UNK
     Route: 065
     Dates: start: 20230301, end: 20230616
  14. RITUXIMAB [Suspect]
     Active Substance: RITUXIMAB
     Indication: Diffuse large B-cell lymphoma stage I
     Dosage: CYCLE 1, AS A PART OF R-ICE REGIMEN
     Route: 042
     Dates: start: 20240205, end: 20240205
  15. RITUXIMAB [Suspect]
     Active Substance: RITUXIMAB
     Dosage: CYCLE 2, AS A PART OF R-ICE REGIMEN
     Route: 042
     Dates: start: 20240320, end: 20240320
  16. RITUXIMAB [Suspect]
     Active Substance: RITUXIMAB
     Dosage: CYCLE 3, ONGOING, AS A PART OF R-ICE REGIMEN
     Route: 042
     Dates: start: 20240423
  17. DEXCHLORPHENIRAMINE [Suspect]
     Active Substance: DEXCHLORPHENIRAMINE
     Indication: Premedication
     Dosage: 2.000MG
     Route: 050
     Dates: start: 20240408, end: 20240408
  18. DEXCHLORPHENIRAMINE [Suspect]
     Active Substance: DEXCHLORPHENIRAMINE
     Dosage: 12.000MG
     Route: 042
     Dates: start: 20240425, end: 20240425
  19. DEXCHLORPHENIRAMINE [Suspect]
     Active Substance: DEXCHLORPHENIRAMINE
     Route: 065
     Dates: start: 20240418
  20. ERGOCALCIFEROL [Suspect]
     Active Substance: ERGOCALCIFEROL
     Indication: Product used for unknown indication
     Dosage: UNK, ONGOING
     Route: 065
     Dates: start: 20240226, end: 20240505
  21. ERGOCALCIFEROL [Suspect]
     Active Substance: ERGOCALCIFEROL
     Dosage: UNKNOWN
     Route: 065
     Dates: start: 20240226
  22. ACETAMINOPHEN [Suspect]
     Active Substance: ACETAMINOPHEN
     Indication: Premedication
     Dosage: UNK
     Route: 065
     Dates: start: 20240226
  23. ACETAMINOPHEN [Suspect]
     Active Substance: ACETAMINOPHEN
     Dosage: 1000.000MG
     Route: 042
     Dates: start: 20240425, end: 20240425
  24. ACETAMINOPHEN [Suspect]
     Active Substance: ACETAMINOPHEN
     Route: 065
     Dates: start: 20240408, end: 20240408
  25. ACETAMINOPHEN [Suspect]
     Active Substance: ACETAMINOPHEN
     Dosage: 1000 MG
     Route: 048
     Dates: start: 20240425, end: 20240425
  26. OMEPRAZOLE [Suspect]
     Active Substance: OMEPRAZOLE
     Indication: Product used for unknown indication
     Route: 065
     Dates: start: 2023
  27. SULFAMETHOXAZOLE [Suspect]
     Active Substance: SULFAMETHOXAZOLE
     Indication: Product used for unknown indication
     Route: 065
     Dates: start: 20240226
  28. ETOPOSIDE [Suspect]
     Active Substance: ETOPOSIDE
     Indication: Diffuse large B-cell lymphoma stage I
     Dosage: CYCLE 1, AS A PART OF R-ICE REGIMEN
     Route: 042
     Dates: start: 20240205, end: 20240207
  29. ETOPOSIDE [Suspect]
     Active Substance: ETOPOSIDE
     Dosage: 50 MG/M2, FORMULATION: INFUSION, AS A PART OF R-ICE REGIMEN (DOSE ADMINISTERED 2 TIMES)
     Route: 065
     Dates: start: 20240425
  30. ETOPOSIDE [Suspect]
     Active Substance: ETOPOSIDE
     Dosage: 50 MG/M2, CYCLE 3, AS A PART OF R-ICE REGIMEN
     Route: 042
     Dates: start: 20240423, end: 20240425
  31. ETOPOSIDE [Suspect]
     Active Substance: ETOPOSIDE
     Dosage: 50 MG/M2, CYCLE 2, AS A PART OF R-ICE REGIMEN
     Route: 042
     Dates: start: 20240320, end: 20240322
  32. ETOPOSIDE [Suspect]
     Active Substance: ETOPOSIDE
     Dosage: 50 MG/M2, AS A PART OF R-ICE REGIMEN
     Route: 042
     Dates: start: 20240424
  33. APIXABAN [Suspect]
     Active Substance: APIXABAN
     Indication: Product used for unknown indication
     Dosage: UNK
     Route: 065
     Dates: start: 20240226, end: 20240505
  34. TRIMETHOPRIM [Suspect]
     Active Substance: TRIMETHOPRIM
     Indication: Product used for unknown indication
     Route: 065
     Dates: start: 20240226
  35. PREGABALIN [Suspect]
     Active Substance: PREGABALIN
     Indication: Product used for unknown indication
     Dosage: UNK, ONGOING
     Route: 065
     Dates: start: 20240226, end: 20240509
  36. PREGABALIN [Suspect]
     Active Substance: PREGABALIN
     Route: 065
     Dates: start: 20240226
  37. EPCORITAMAB [Suspect]
     Active Substance: EPCORITAMAB
     Indication: Diffuse large B-cell lymphoma stage I
     Dosage: 48 MG/M2, FORMULATION: INFUSION
     Route: 058
     Dates: start: 20240425
  38. EPCORITAMAB [Suspect]
     Active Substance: EPCORITAMAB
     Dosage: 0.16 MG, CYCLE 1, PRIMING DOSE, FORMULATION: INFUSION
     Route: 058
     Dates: start: 20240207, end: 20240207
  39. EPCORITAMAB [Suspect]
     Active Substance: EPCORITAMAB
     Dosage: 48 MG, C3D8
     Route: 058
     Dates: start: 20240503
  40. EPCORITAMAB [Suspect]
     Active Substance: EPCORITAMAB
     Dosage: 0.8 MG, RE-PRIMING INTERMEDIATE DOSE, FORMULATION: INFUSION
     Route: 058
     Dates: start: 20240307, end: 20240307
  41. EPCORITAMAB [Suspect]
     Active Substance: EPCORITAMAB
     Dosage: UNK, C2D1, FORMULATION: INFUSION
     Route: 058
     Dates: start: 20240322, end: 20240322
  42. EPCORITAMAB [Suspect]
     Active Substance: EPCORITAMAB
     Dosage: 0.8 MG, RE-PRIMING DOSE 1, FORMULATION: CONCENTRATE FOR SOLUTION FOR INJECTION
     Route: 058
     Dates: start: 20240229, end: 20240229
  43. EPCORITAMAB [Suspect]
     Active Substance: EPCORITAMAB
     Dosage: 48 MG, FIRST FULL DOSE, RE-PRIMING 1, FORMULATION: INFUSION
     Route: 058
     Dates: start: 20240314, end: 20240314
  44. EPCORITAMAB [Suspect]
     Active Substance: EPCORITAMAB
     Dosage: 48 MG, FORMULATION: INFUSION
     Route: 058
     Dates: start: 20240418
  45. EPCORITAMAB [Suspect]
     Active Substance: EPCORITAMAB
     Dosage: UNK, C2D8, FORMULATION: INFUSION
     Route: 058
     Dates: start: 20240410, end: 20240410
  46. EPCORITAMAB [Suspect]
     Active Substance: EPCORITAMAB
     Dosage: ,
     Route: 065
     Dates: start: 20240520
  47. CYCLOPHOSPHAMIDE [Suspect]
     Active Substance: CYCLOPHOSPHAMIDE
     Indication: Product used for unknown indication
     Dosage: UNK
     Route: 065
     Dates: start: 20230301, end: 20230616
  48. METOCLOPRAMIDE HYDROCHLORIDE [Concomitant]
     Active Substance: METOCLOPRAMIDE HYDROCHLORIDE
     Indication: Product used for unknown indication
     Dates: start: 20240506, end: 20240509
  49. ERGOCALCIFEROL [Concomitant]
     Active Substance: ERGOCALCIFEROL
     Indication: Product used for unknown indication
     Dates: start: 2011
  50. MAGNESIUM SULFATE [Concomitant]
     Active Substance: MAGNESIUM SULFATE
     Indication: Product used for unknown indication
     Dates: start: 20240506, end: 20240506
  51. PIPERACILLIN [Concomitant]
     Active Substance: PIPERACILLIN
     Indication: Product used for unknown indication
     Dates: start: 20240506, end: 20240509
  52. METAMIZOLE [Concomitant]
     Active Substance: METAMIZOLE
     Indication: Product used for unknown indication
     Dates: start: 20240506, end: 20240506
  53. ONDANSETRON [Concomitant]
     Active Substance: ONDANSETRON
     Indication: Product used for unknown indication
     Dates: start: 20240506, end: 20240509
  54. TAZOBACTAM [Concomitant]
     Active Substance: TAZOBACTAM
     Indication: Product used for unknown indication
     Dates: start: 20240506, end: 20240509

REACTIONS (1)
  - Febrile neutropenia [Recovered/Resolved]

NARRATIVE: CASE EVENT DATE: 20240506
